FAERS Safety Report 6186570-4 (Version None)
Quarter: 2009Q2

REPORT INFORMATION
  Report Type: 
  Country: None (occurrence: None)
  Receive Date: 20090512
  Receipt Date: 20090507
  Transmission Date: 20091009
  Serious: Yes (Other)
  Sender: FDA-Public Use
  Company Number: US-BRISTOL-MYERS SQUIBB COMPANY-14614929

PATIENT
  Age: 34 Year
  Sex: Male

DRUGS (11)
  1. BLEOMYCIN SULFATE [Suspect]
     Indication: HODGKIN'S DISEASE
  2. ETOPOSIDE [Suspect]
     Indication: HODGKIN'S DISEASE
  3. CARBOPLATIN [Suspect]
     Indication: HODGKIN'S DISEASE
  4. DOXORUBICIN HCL [Suspect]
     Indication: HODGKIN'S DISEASE
  5. IFOSFAMIDE [Suspect]
     Indication: HODGKIN'S DISEASE
  6. ONCOVIN [Suspect]
     Indication: HODGKIN'S DISEASE
  7. VINBLASTINE [Suspect]
     Indication: HODGKIN'S DISEASE
  8. MUSTARGEN [Suspect]
     Indication: HODGKIN'S DISEASE
  9. DACARBAZINE [Suspect]
     Indication: HODGKIN'S DISEASE
  10. PROCARBAZINE [Suspect]
     Indication: HODGKIN'S DISEASE
  11. PREDNISOLONE [Suspect]
     Indication: HODGKIN'S DISEASE

REACTIONS (1)
  - ACUTE LYMPHOCYTIC LEUKAEMIA [None]
